FAERS Safety Report 6548407-0 (Version None)
Quarter: 2010Q1

REPORT INFORMATION
  Report Type: 
  Country: None (occurrence: None)
  Receive Date: 20100124
  Receipt Date: 20090617
  Transmission Date: 20100710
  Serious: No
  Sender: FDA-Public Use
  Company Number: US-ALLERGAN-0908422US

PATIENT
  Age: 29 Year
  Sex: Female

DRUGS (9)
  1. RESTASIS [Suspect]
     Indication: DRY EYE
     Dosage: UNK, UNK
     Dates: start: 20090401
  2. METHOTREXATE [Concomitant]
     Dosage: 2.5 MG, Q WEEK
  3. DILANTIN [Concomitant]
     Dosage: 100 MG, TID
  4. PREDNISONE [Concomitant]
     Dosage: 5 MG, QD
  5. TOPAMAX [Concomitant]
     Dosage: 200 MG, TID
  6. DICLOFENAC SODIUM [Concomitant]
     Dosage: 75 MG, BID
  7. HYDROXYCHLOROQUINE SULFATE [Concomitant]
     Dosage: 200 MG, QD
  8. SULIC ACID [Concomitant]
     Dosage: 1 MG, QD
  9. ALENDRONATE SODIUM [Concomitant]
     Dosage: 70 MG, Q WEEK

REACTIONS (2)
  - DYSGEUSIA [None]
  - TONSILLITIS [None]
